FAERS Safety Report 7263952-0 (Version None)
Quarter: 2011Q1

REPORT INFORMATION
  Report Type: 
  Country: None (occurrence: None)
  Receive Date: 20110130
  Receipt Date: 20101026
  Transmission Date: 20110831
  Serious: No
  Sender: FDA-Public Use
  Company Number: US-ABBOTT-10P-163-0682529-00

PATIENT
  Sex: Male
  Weight: 69.916 kg

DRUGS (1)
  1. HUMIRA [Suspect]
     Indication: ANKYLOSING SPONDYLITIS
     Route: 058
     Dates: start: 20100922, end: 20101026

REACTIONS (2)
  - PUSTULAR PSORIASIS [None]
  - RASH PUSTULAR [None]
